FAERS Safety Report 23446374 (Version 1)
Quarter: 2024Q1

REPORT INFORMATION
  Report Type: Spontaneous
  Country: US (occurrence: None)
  Receive Date: 20240125
  Receipt Date: 20240125
  Transmission Date: 20240410
  Serious: No
  Sender: FDA-Public Use
  Company Number: None

PATIENT
  Age: 61 Year
  Sex: Female

DRUGS (1)
  1. COSENTYX [Suspect]
     Active Substance: SECUKINUMAB
     Indication: Psoriatic arthropathy
     Dosage: INJECT 300MG (1 PEN) SUBCUTANEOUSLY EVERY 4 WEEKS AS DIRECTED.   ?
     Route: 058
     Dates: start: 202307

REACTIONS (1)
  - Influenza [None]
